FAERS Safety Report 9607781 (Version 1)
Quarter: 2013Q4

REPORT INFORMATION
  Report Type: Spontaneous
  Country: US (occurrence: None)
  Receive Date: 20131008
  Receipt Date: 20131008
  Transmission Date: 20140711
  Serious: No
  Sender: FDA-Public Use
  Company Number: None

PATIENT
  Age: 50 Year
  Sex: Female
  Weight: 58.51 kg

DRUGS (1)
  1. ACTONEL [Suspect]
     Indication: OSTEOPENIA
     Dosage: 1 MONTHLY
     Route: 048
     Dates: start: 20040601, end: 20130601

REACTIONS (6)
  - Back pain [None]
  - Constipation [None]
  - Abdominal distension [None]
  - Spinal pain [None]
  - Musculoskeletal pain [None]
  - Faeces discoloured [None]
